FAERS Safety Report 6802008-5 (Version None)
Quarter: 2010Q2

REPORT INFORMATION
  Report Type: 
  Country: None (occurrence: None)
  Receive Date: 20100629
  Receipt Date: 20071108
  Transmission Date: 20101027
  Serious: No
  Sender: FDA-Public Use
  Company Number: US-PFIZER INC-2005048224

PATIENT
  Sex: Male
  Weight: 77.11 kg

DRUGS (13)
  1. VIAGRA [Suspect]
     Indication: ERECTILE DYSFUNCTION
     Route: 048
  2. ALPHA-ADRENOCEPTOR BLOCKING AGENTS [Concomitant]
     Route: 048
  3. COREG [Concomitant]
  4. ZESTORETIC [Concomitant]
  5. TAMSULOSIN HYDROCHLORIDE [Concomitant]
  6. ACETYLSALICYLIC ACID [Concomitant]
  7. GLUCOSAMINE [Concomitant]
  8. LOVAZA [Concomitant]
  9. CENTRUM SILVER [Concomitant]
  10. POTASSIUM CHLORIDE [Concomitant]
  11. BETA BLOCKING AGENTS [Concomitant]
  12. ACE INHIBITOR NOS [Concomitant]
  13. LASIX [Concomitant]

REACTIONS (8)
  - BLOOD CHOLESTEROL INCREASED [None]
  - BODY HEIGHT DECREASED [None]
  - CHROMATOPSIA [None]
  - DRUG INEFFECTIVE [None]
  - DRUG TOLERANCE [None]
  - EYE PAIN [None]
  - FLUSHING [None]
  - VISION BLURRED [None]
